FAERS Safety Report 9813587 (Version 1)
Quarter: 2014Q1

REPORT INFORMATION
  Report Type: Spontaneous
  Country: US (occurrence: None)
  Receive Date: 20140109
  Receipt Date: 20140109
  Transmission Date: 20141002
  Serious: Yes (Other)
  Sender: FDA-Public Use
  Company Number: None

PATIENT
  Age: 47 Year
  Sex: Female

DRUGS (1)
  1. TECFIDERA 240MG BIOGEN IDEC [Suspect]
     Route: 048
     Dates: start: 20131230, end: 20140108

REACTIONS (3)
  - Flushing [None]
  - Nausea [None]
  - Vomiting [None]
